FAERS Safety Report 23397921 (Version 4)
Quarter: 2024Q2

REPORT INFORMATION
  Report Type: Spontaneous
  Country: US (occurrence: US)
  Receive Date: 20240112
  Receipt Date: 20240510
  Transmission Date: 20240715
  Serious: Yes (Death, Hospitalization)
  Sender: FDA-Public Use
  Company Number: US-PFIZER INC-PV202300203087

PATIENT
  Age: 79 Year
  Sex: Male
  Weight: 68.027 kg

DRUGS (4)
  1. BRAFTOVI [Suspect]
     Active Substance: ENCORAFENIB
     Indication: Thyroid cancer
     Dosage: TAKE 6 CAPSULES (OF 75 MG) DAILY
     Route: 048
     Dates: start: 20231228
  2. BRAFTOVI [Suspect]
     Active Substance: ENCORAFENIB
     Indication: Neoplasm malignant
  3. MEKTOVI [Suspect]
     Active Substance: BINIMETINIB
     Indication: Thyroid cancer
     Dosage: TAKE 3 TABLETS (45 MG) EVERY 12 (TWELVE) HOURS
     Route: 048
     Dates: start: 20231228
  4. MEKTOVI [Suspect]
     Active Substance: BINIMETINIB
     Indication: Neoplasm malignant

REACTIONS (4)
  - Death [Fatal]
  - Off label use [Unknown]
  - Rash [Unknown]
  - Pyrexia [Recovered/Resolved]

NARRATIVE: CASE EVENT DATE: 20240101
